FAERS Safety Report 14057499 (Version 1)
Quarter: 2017Q4

REPORT INFORMATION
  Report Type: Spontaneous
  Country: US (occurrence: US)
  Receive Date: 20171006
  Receipt Date: 20171006
  Transmission Date: 20180321
  Serious: Yes (Hospitalization)
  Sender: FDA-Public Use
  Company Number: US-BEH-2017084068

PATIENT
  Age: 72 Year
  Sex: Female
  Weight: 64.85 kg

DRUGS (29)
  1. HIZENTRA [Suspect]
     Active Substance: HUMAN IMMUNOGLOBULIN G
     Indication: IMMUNODEFICIENCY COMMON VARIABLE
     Dosage: 10 G, QW
     Route: 058
     Dates: start: 20140625
  2. TRAZODONE [Concomitant]
     Active Substance: TRAZODONE HYDROCHLORIDE
  3. IRON [Concomitant]
     Active Substance: IRON
  4. VITAMIN B12 [Concomitant]
     Active Substance: CYANOCOBALAMIN
  5. FEXOFENADINE [Concomitant]
     Active Substance: FEXOFENADINE\FEXOFENADINE HYDROCHLORIDE
  6. DIGOXIN. [Concomitant]
     Active Substance: DIGOXIN
  7. ACETAMINOPHEN. [Concomitant]
     Active Substance: ACETAMINOPHEN
  8. EPIPEN [Concomitant]
     Active Substance: EPINEPHRINE
  9. ELIQUIS [Concomitant]
     Active Substance: APIXABAN
  10. PREDNISONE. [Concomitant]
     Active Substance: PREDNISONE
  11. PROAIR HFA [Concomitant]
     Active Substance: ALBUTEROL SULFATE
  12. DILTIAZEM. [Concomitant]
     Active Substance: DILTIAZEM
  13. PROBIOTIC                          /06395501/ [Concomitant]
     Active Substance: BIFIDOBACTERIUM ANIMALIS LACTIS
  14. LEVOTHYROXINE. [Concomitant]
     Active Substance: LEVOTHYROXINE
  15. NAC                                /00082801/ [Concomitant]
  16. LIDOCAINE. [Concomitant]
     Active Substance: LIDOCAINE
  17. VITAMIN D3 [Concomitant]
     Active Substance: CHOLECALCIFEROL
  18. SPIRIVA [Concomitant]
     Active Substance: TIOTROPIUM BROMIDE MONOHYDRATE
  19. LEXAPRO [Concomitant]
     Active Substance: ESCITALOPRAM OXALATE
  20. TORSEMIDE. [Concomitant]
     Active Substance: TORSEMIDE
  21. METHIMAZOLE. [Concomitant]
     Active Substance: METHIMAZOLE
  22. DALIRESP [Concomitant]
     Active Substance: ROFLUMILAST
  23. BUDESONIDE. [Concomitant]
     Active Substance: BUDESONIDE
  24. PERFOROMIST [Concomitant]
     Active Substance: FORMOTEROL FUMARATE DIHYDRATE
  25. KLOR-CON [Concomitant]
     Active Substance: POTASSIUM CHLORIDE
  26. FLONASE [Concomitant]
     Active Substance: FLUTICASONE PROPIONATE
  27. ALBUTEROL SULFATE. [Concomitant]
     Active Substance: ALBUTEROL SULFATE
  28. DIPHENHYDRAMINE. [Concomitant]
     Active Substance: DIPHENHYDRAMINE
  29. CALCIUM [Concomitant]
     Active Substance: CALCIUM

REACTIONS (1)
  - Intestinal obstruction [Unknown]

NARRATIVE: CASE EVENT DATE: 2017
